FAERS Safety Report 5297713-9 (Version None)
Quarter: 2007Q2

REPORT INFORMATION
  Report Type: 
  Country: None (occurrence: None)
  Receive Date: 20070412
  Receipt Date: 20070412
  Transmission Date: 20071010
  Serious: Yes (Hospitalization)
  Sender: FDA-Public Use
  Company Number: None

PATIENT
  Sex: Female
  Weight: 57.27 kg

DRUGS (2)
  1. CISPLATIN [Suspect]
     Dosage: 77 MG
  2. TAXOL [Suspect]
     Dosage: 206 MG

REACTIONS (16)
  - CONVULSION [None]
  - DYSKINESIA [None]
  - ENDOMETRITIS [None]
  - HAEMATURIA [None]
  - HAEMOGLOBIN DECREASED [None]
  - HALLUCINATION [None]
  - HYPOGLYCAEMIA [None]
  - LEUKOCYTOSIS [None]
  - LOSS OF CONSCIOUSNESS [None]
  - MENTAL STATUS CHANGES [None]
  - METABOLIC ACIDOSIS [None]
  - MUSCLE TWITCHING [None]
  - NECROSIS [None]
  - PARTIAL SEIZURES [None]
  - RESPIRATORY ALKALOSIS [None]
  - URINARY RETENTION [None]
